FAERS Safety Report 24810654 (Version 1)
Quarter: 2025Q1

REPORT INFORMATION
  Report Type: Spontaneous
  Country: US (occurrence: US)
  Receive Date: 20250106
  Receipt Date: 20250106
  Transmission Date: 20250408
  Serious: No
  Sender: MYLAN
  Company Number: US-MYLANLABS-2024M1114448

PATIENT
  Sex: Female

DRUGS (1)
  1. RIVASTIGMINE TRANSDERMAL SYSTEM [Suspect]
     Active Substance: RIVASTIGMINE
     Indication: Dementia Alzheimer^s type
     Dosage: 4.6 MILLIGRAM, QD
     Route: 062

REACTIONS (3)
  - Product residue present [Unknown]
  - Product design issue [Unknown]
  - Product quality issue [Unknown]
